FAERS Safety Report 5605011-6 (Version None)
Quarter: 2008Q1

REPORT INFORMATION
  Report Type: 
  Country: None (occurrence: None)
  Receive Date: 20080111
  Receipt Date: 20071005
  Transmission Date: 20080703
  Serious: Yes (Other)
  Sender: FDA-Public Use
  Company Number: HQ3954826AUG2002

PATIENT
  Age: 56 Year
  Sex: Female

DRUGS (1)
  1. PREMPRO [Suspect]
     Dosage: DAILY, ORAL
     Route: 048
     Dates: start: 19960101

REACTIONS (2)
  - BREAST CANCER FEMALE [None]
  - BREAST NEOPLASM [None]
